FAERS Safety Report 7699545-0 (Version None)
Quarter: 2011Q3

REPORT INFORMATION
  Report Type: 
  Country: None (occurrence: None)
  Receive Date: 20110821
  Receipt Date: 20110817
  Transmission Date: 20111222
  Serious: Yes (Other)
  Sender: FDA-Public Use
  Company Number: ES-BRISTOL-MYERS SQUIBB COMPANY-15946510

PATIENT
  Age: 73 Year
  Sex: Female

DRUGS (5)
  1. SIMVASTATIN [Concomitant]
     Dates: start: 20101220
  2. IPILIMUMAB [Suspect]
     Indication: MALIGNANT MELANOMA
     Dates: start: 20110113, end: 20110323
  3. SINEMET [Concomitant]
  4. COROPRES [Concomitant]
     Dates: start: 20091209, end: 20101201
  5. ACOVIL [Concomitant]
     Dates: start: 20091209, end: 20101201

REACTIONS (3)
  - VENTRICULAR HYPOKINESIA [None]
  - BRAIN NATRIURETIC PEPTIDE INCREASED [None]
  - EJECTION FRACTION DECREASED [None]
